FAERS Safety Report 8309398-5 (Version None)
Quarter: 2012Q2

REPORT INFORMATION
  Report Type: 
  Country: None (occurrence: None)
  Receive Date: 20120420
  Receipt Date: 20120406
  Transmission Date: 20120825
  Serious: Yes (Death)
  Sender: FDA-Public Use
  Company Number: AUR-APL-2012-01738

PATIENT
  Age: 50 Year
  Sex: Female
  Weight: 74.5 kg

DRUGS (4)
  1. LYRICA [Suspect]
     Indication: CONVULSION
     Dosage: (75 MQ), ORAL
     Route: 048
     Dates: start: 20100521
  2. LEVETIRACETAM [Suspect]
     Indication: PRODUCT USED FOR UNKNOWN INDICATION
     Dosage: (1500 MG),ORAL
     Route: 048
     Dates: start: 20100429
  3. DIAZEPAM [Suspect]
     Indication: CONVULSION
     Dosage: (AS REQUIRED),INTRAMUSCULAR
     Route: 030
     Dates: start: 20100601
  4. DIVALPROEX SODIUM [Suspect]
     Indication: CONVULSION
     Dosage: (2500 MG),ORAL
     Route: 048
     Dates: start: 20100412

REACTIONS (2)
  - CHOKING [None]
  - CONVULSION [None]
